FAERS Safety Report 4563499-6 (Version None)
Quarter: 2005Q1

REPORT INFORMATION
  Report Type: 
  Country: None (occurrence: None)
  Receive Date: 20050128
  Receipt Date: 20040715
  Transmission Date: 20050727
  Serious: No
  Sender: FDA-Public Use
  Company Number: US-GLAXOSMITHKLINE-A0518530A

PATIENT
  Age: 40 Year
  Sex: Female

DRUGS (11)
  1. WELLBUTRIN [Suspect]
     Indication: DEPRESSION
     Route: 048
  2. ZOLOFT [Concomitant]
  3. ATIVAN [Concomitant]
  4. NEURONTIN [Concomitant]
  5. DURAGESIC [Concomitant]
  6. LORTAB [Concomitant]
  7. RESTORIL [Concomitant]
  8. NAPROSYN [Concomitant]
  9. AMBIEN [Concomitant]
  10. XANAX [Concomitant]
  11. TYLENOL PM [Concomitant]

REACTIONS (1)
  - DRUG SCREEN POSITIVE [None]
